FAERS Safety Report 18832539 (Version 6)
Quarter: 2021Q3

REPORT INFORMATION
  Report Type: Report from Study
  Country: TW (occurrence: TW)
  Receive Date: 20210203
  Receipt Date: 20210810
  Transmission Date: 20211014
  Serious: Yes (Hospitalization)
  Sender: FDA-Public Use
  Company Number: TW-ROCHE-2756605

PATIENT
  Age: 62 Year
  Sex: Male
  Weight: 74.1 kg

DRUGS (14)
  1. VETERIN [Concomitant]
     Indication: PNEUMONIA
     Route: 042
     Dates: start: 20210204, end: 20210206
  2. POTASSIUM GLUCONATE [Concomitant]
     Active Substance: POTASSIUM GLUCONATE
     Indication: HYPOKALAEMIA
     Route: 048
     Dates: start: 20210123, end: 20210124
  3. HEPARIN [Concomitant]
     Active Substance: HEPARIN SODIUM
     Dosage: DOSE 5000 U
     Route: 042
     Dates: start: 20210123, end: 20210126
  4. ETOPOSIDE. [Suspect]
     Active Substance: ETOPOSIDE
     Indication: SMALL CELL LUNG CANCER EXTENSIVE STAGE
     Dosage: START DATE OF MOST RECENT DOSE OF STUDY DRUG PRIOR TO AE 07/JAN/2021 (148 MG)
     Route: 042
     Dates: start: 20201109
  5. KCL [Concomitant]
     Active Substance: POTASSIUM CHLORIDE
     Indication: HYPOKALAEMIA
     Route: 042
     Dates: start: 20210124, end: 20210125
  6. ATEZOLIZUMAB. [Suspect]
     Active Substance: ATEZOLIZUMAB
     Indication: SMALL CELL LUNG CANCER EXTENSIVE STAGE
     Dosage: ON 05/JAN/2021, HE RECEIVED MOST RECENT DOSE OF ATEZOLIZUMAB (DOSE OF 600 MG) PRIOR TO SAE.
     Route: 042
     Dates: start: 20201109
  7. CARBOPLATIN. [Suspect]
     Active Substance: CARBOPLATIN
     Indication: SMALL CELL LUNG CANCER EXTENSIVE STAGE
     Dosage: START DATE OF MOST RECENT DOSE OF STUDY DRUG PRIOR TO AE 05/JAN/2021 (610.5 MG)
     Route: 042
     Dates: start: 20201109
  8. TAZOCIN [Concomitant]
     Active Substance: PIPERACILLIN SODIUM\TAZOBACTAM SODIUM
     Indication: PNEUMONIA
     Route: 042
     Dates: start: 20210125, end: 20210204
  9. BLINDED TIRAGOLUMAB [Suspect]
     Active Substance: TIRAGOLUMAB
     Indication: SMALL CELL LUNG CANCER EXTENSIVE STAGE
     Dosage: ON 05/JAN/2021, HE RECEIVED MOST RECENT DOSE OF BLINDED MTIG 7192A PRIOR TO SAE.
     Route: 042
     Dates: start: 20201109
  10. KCL [Concomitant]
     Active Substance: POTASSIUM CHLORIDE
     Route: 042
     Dates: start: 20210125, end: 20210126
  11. G?CSF [Concomitant]
     Active Substance: GRANULOCYTE COLONY-STIMULATING FACTOR NOS
     Indication: NEUTROPHIL COUNT DECREASED
     Route: 058
     Dates: start: 20201229, end: 20201231
  12. MAGNESIUM SULFATE. [Concomitant]
     Active Substance: MAGNESIUM SULFATE
     Route: 042
     Dates: start: 20210125, end: 20210126
  13. METOCLOPRAMIDE. [Concomitant]
     Active Substance: METOCLOPRAMIDE
     Indication: PROPHYLAXIS
     Route: 042
     Dates: start: 20210124, end: 20210126
  14. ACETAMINOPHEN. [Concomitant]
     Active Substance: ACETAMINOPHEN
     Route: 048
     Dates: start: 20210127

REACTIONS (1)
  - Ventricular arrhythmia [Recovered/Resolved]

NARRATIVE: CASE EVENT DATE: 20210122
